FAERS Safety Report 12368994 (Version 4)
Quarter: 2019Q3

REPORT INFORMATION
  Report Type: Spontaneous
  Country: US (occurrence: US)
  Receive Date: 20160513
  Receipt Date: 20190819
  Transmission Date: 20191004
  Serious: Yes (Death)
  Sender: FDA-Public Use
  Company Number: US-PFIZER INC-2016225015

PATIENT
  Age: 88 Year
  Sex: Female
  Weight: 53.5 kg

DRUGS (4)
  1. LYRICA [Suspect]
     Active Substance: PREGABALIN
     Dosage: 50 MG, UNK (ONE MORNING, ONE AFTER NOON, AND THEN SHE IS TAKING 25 MG P.R.N)
  2. LYRICA [Suspect]
     Active Substance: PREGABALIN
     Indication: BREAKTHROUGH PAIN
     Dosage: 25 MG, ONCE A DAY AS NEEDED
  3. LYRICA [Suspect]
     Active Substance: PREGABALIN
     Dosage: 50 MG, 2X/DAY
  4. LYRICA [Suspect]
     Active Substance: PREGABALIN
     Indication: POST HERPETIC NEURALGIA
     Dosage: 25 MG, 2X/DAY
     Dates: end: 20160415

REACTIONS (7)
  - Headache [Not Recovered/Not Resolved]
  - Malaise [Unknown]
  - Death [Fatal]
  - Asthenia [Unknown]
  - Off label use [Unknown]
  - Eye pain [Not Recovered/Not Resolved]
  - Pain [Unknown]

NARRATIVE: CASE EVENT DATE: 20160416
